FAERS Safety Report 17736151 (Version 2)
Quarter: 2020Q3

REPORT INFORMATION
  Report Type: Spontaneous
  Country: US (occurrence: US)
  Receive Date: 20200501
  Receipt Date: 20200713
  Transmission Date: 20201102
  Serious: Yes (Other)
  Sender: FDA-Public Use
  Company Number: US-PFIZER INC-2020173948

PATIENT
  Age: 70 Year
  Sex: Female

DRUGS (1)
  1. XELJANZ [Suspect]
     Active Substance: TOFACITINIB CITRATE
     Indication: RHEUMATOID ARTHRITIS
     Dosage: 5 MG, TWICE A DAY
     Route: 048
     Dates: start: 2020

REACTIONS (11)
  - Fall [Unknown]
  - Dizziness [Unknown]
  - Arthralgia [Unknown]
  - Product dose omission issue [Unknown]
  - Musculoskeletal stiffness [Unknown]
  - Back pain [Unknown]
  - Pain [Unknown]
  - Cerebral cyst [Unknown]
  - Vertigo [Unknown]
  - Frustration tolerance decreased [Unknown]
  - Affective disorder [Unknown]

NARRATIVE: CASE EVENT DATE: 2020
